FAERS Safety Report 12257186 (Version 1)
Quarter: 2016Q2

REPORT INFORMATION
  Report Type: Spontaneous
  Country: US (occurrence: US)
  Receive Date: 20160412
  Receipt Date: 20160412
  Transmission Date: 20160815
  Serious: Yes (Hospitalization, Other)
  Sender: FDA-Public Use
  Company Number: US-AMGEN-USASP2016044680

PATIENT
  Age: 65 Year
  Sex: Male

DRUGS (1)
  1. ENBREL [Suspect]
     Active Substance: ETANERCEPT
     Indication: PRODUCT USED FOR UNKNOWN INDICATION
     Dosage: UNK
     Route: 065

REACTIONS (10)
  - Pyrexia [Unknown]
  - Pneumonia [Unknown]
  - Chest pain [Unknown]
  - Peripheral swelling [Unknown]
  - Night sweats [Unknown]
  - Injection site rash [Recovered/Resolved]
  - Dyspnoea [Unknown]
  - Psoriasis [Unknown]
  - Cough [Unknown]
  - Adverse drug reaction [Unknown]
